FAERS Safety Report 9595501 (Version 1)
Quarter: 2013Q4

REPORT INFORMATION
  Report Type: Spontaneous
  Country: US (occurrence: US)
  Receive Date: 20131004
  Receipt Date: 20131004
  Transmission Date: 20140711
  Serious: No
  Sender: FDA-Public Use
  Company Number: US-PFIZER INC-2013282886

PATIENT
  Age: 81 Year
  Sex: Female
  Weight: 72.56 kg

DRUGS (1)
  1. ADVIL [Suspect]
     Indication: ARTHRALGIA
     Dosage: 200 MG, ONCE A DAY
     Route: 048
     Dates: start: 20130928, end: 20130929

REACTIONS (5)
  - Hypersensitivity [Unknown]
  - Abdominal pain upper [Unknown]
  - Dizziness [Unknown]
  - Nausea [Unknown]
  - Gastric disorder [Unknown]
